FAERS Safety Report 12168510 (Version 1)
Quarter: 2016Q1

REPORT INFORMATION
  Report Type: Spontaneous
  Country: US (occurrence: US)
  Receive Date: 20160310
  Receipt Date: 20160310
  Transmission Date: 20160526
  Serious: Yes (Other)
  Sender: FDA-Public Use
  Company Number: US-PFIZER INC-2016143887

PATIENT
  Sex: Female

DRUGS (1)
  1. ROBITUSSIN COUGH AND CHEST CONGESTION DM [Suspect]
     Active Substance: DEXTROMETHORPHAN HYDROBROMIDE\GUAIFENESIN
     Dosage: UNK

REACTIONS (6)
  - Product formulation issue [Unknown]
  - Seizure [Unknown]
  - Dyspnoea [Unknown]
  - Asthenia [Unknown]
  - Confusional state [Unknown]
  - Tremor [Unknown]
